FAERS Safety Report 12632392 (Version 2)
Quarter: 2016Q3

REPORT INFORMATION
  Report Type: Spontaneous
  Country: US (occurrence: US)
  Receive Date: 20160808
  Receipt Date: 20160808
  Transmission Date: 20161109
  Serious: No
  Sender: FDA-Public Use
  Company Number: US-BEH-2016062700

PATIENT
  Sex: Female
  Weight: 67 kg

DRUGS (20)
  1. ACETAMINOPHEN. [Concomitant]
     Active Substance: ACETAMINOPHEN
  2. PROTONIX [Concomitant]
     Active Substance: PANTOPRAZOLE SODIUM
  3. OXYCODONE [Concomitant]
     Active Substance: OXYCODONE
  4. XYZAL [Concomitant]
     Active Substance: LEVOCETIRIZINE DIHYDROCHLORIDE
  5. SPIRONOLACTONE. [Concomitant]
     Active Substance: SPIRONOLACTONE
  6. MORPHINE SULF [Concomitant]
     Active Substance: MORPHINE SULFATE
  7. LEVAQUIN [Concomitant]
     Active Substance: LEVOFLOXACIN
  8. ESTRADIOL. [Concomitant]
     Active Substance: ESTRADIOL
  9. PROAIR HFA [Concomitant]
     Active Substance: ALBUTEROL SULFATE
  10. PREDNISONE. [Concomitant]
     Active Substance: PREDNISONE
  11. VALIUM [Concomitant]
     Active Substance: DIAZEPAM
  12. TRAZODONE [Concomitant]
     Active Substance: TRAZODONE HYDROCHLORIDE
  13. HIZENTRA [Suspect]
     Active Substance: HUMAN IMMUNOGLOBULIN G
     Indication: IMMUNODEFICIENCY COMMON VARIABLE
     Route: 058
  14. EPIPEN [Concomitant]
     Active Substance: EPINEPHRINE
  15. EFFEXOR XR [Concomitant]
     Active Substance: VENLAFAXINE HYDROCHLORIDE
  16. NEURONTIN [Concomitant]
     Active Substance: GABAPENTIN
  17. LISINOPRIL. [Concomitant]
     Active Substance: LISINOPRIL
  18. DIPHENHYDRAMINE. [Concomitant]
     Active Substance: DIPHENHYDRAMINE
  19. L-M-X [Concomitant]
  20. LEVOTHYROXINE. [Concomitant]
     Active Substance: LEVOTHYROXINE

REACTIONS (3)
  - Pruritus [Unknown]
  - Lacrimation increased [Unknown]
  - Rhinorrhoea [Unknown]
